FAERS Safety Report 25996667 (Version 1)
Quarter: 2025Q4

REPORT INFORMATION
  Report Type: Spontaneous
  Country: GB (occurrence: GB)
  Receive Date: 20251104
  Receipt Date: 20251104
  Transmission Date: 20260117
  Serious: Yes (Other)
  Sender: NOVARTIS
  Company Number: GB-ORG100013279-033095

PATIENT
  Sex: Male

DRUGS (1)
  1. TERBINAFINE [Suspect]
     Active Substance: TERBINAFINE
     Indication: Adverse drug reaction
     Dosage: UNK
     Route: 048

REACTIONS (1)
  - Ageusia [Recovering/Resolving]

NARRATIVE: CASE EVENT DATE: 20251001
